FAERS Safety Report 6201144-4 (Version None)
Quarter: 2009Q2

REPORT INFORMATION
  Report Type: 
  Country: None (occurrence: None)
  Receive Date: 20090526
  Receipt Date: 20090519
  Transmission Date: 20091009
  Serious: No
  Sender: FDA-Public Use
  Company Number: US-JNJFOC-20090404481

PATIENT
  Sex: Female
  Weight: 58.97 kg

DRUGS (4)
  1. DURAGESIC-100 [Suspect]
     Indication: PAIN
     Route: 062
  2. PREVACID [Concomitant]
     Indication: GASTRIC DISORDER
     Route: 048
  3. SERTRALINE HCL [Concomitant]
     Indication: NERVOUS SYSTEM DISORDER
     Route: 048
  4. ALPRAZOLAM [Concomitant]
     Indication: NERVOUS SYSTEM DISORDER
     Dosage: AS NEEDED
     Route: 048

REACTIONS (3)
  - DRUG DOSE OMISSION [None]
  - FEELING ABNORMAL [None]
  - OEDEMA PERIPHERAL [None]
